FAERS Safety Report 6065134-7 (Version None)
Quarter: 2009Q1

REPORT INFORMATION
  Report Type: 
  Country: None (occurrence: None)
  Receive Date: 20090204
  Receipt Date: 20090126
  Transmission Date: 20090719
  Serious: Yes (Hospitalization)
  Sender: FDA-Public Use
  Company Number: BE-ABBOTT-09P-013-0499754-00

PATIENT
  Sex: Female

DRUGS (5)
  1. HUMIRA [Suspect]
     Indication: ANKYLOSING SPONDYLITIS
     Route: 058
     Dates: start: 20080804, end: 20080927
  2. HUMIRA [Suspect]
     Route: 058
     Dates: end: 20081104
  3. HUMIRA [Suspect]
  4. FELDENE [Concomitant]
     Indication: DRUG USE FOR UNKNOWN INDICATION
  5. FEMODENE [Concomitant]
     Indication: DRUG USE FOR UNKNOWN INDICATION

REACTIONS (4)
  - ANAEMIA [None]
  - CROHN'S DISEASE [None]
  - NEUTROPHILIA [None]
  - RENAL CANCER [None]
